FAERS Safety Report 5694141-9 (Version None)
Quarter: 2008Q2

REPORT INFORMATION
  Report Type: 
  Country: None (occurrence: None)
  Receive Date: 20080402
  Receipt Date: 20080319
  Transmission Date: 20081010
  Serious: Yes (Hospitalization)
  Sender: FDA-Public Use
  Company Number: MEDI-0006175

PATIENT
  Age: 12 Month
  Sex: Female
  Weight: 8.97 kg

DRUGS (3)
  1. SYNAGIS [Suspect]
     Indication: ANTIVIRAL PROPHYLAXIS
     Dosage: 15 MG/KG, 1 IN 1 M, INTRAMUSCULAR
     Route: 030
     Dates: start: 20071003, end: 20071107
  2. SYNAGIS [Suspect]
     Indication: PREMATURE BABY
     Dosage: 15 MG/KG, 1 IN 1 M, INTRAMUSCULAR
     Route: 030
     Dates: start: 20071003, end: 20071107
  3. SYNAGIS [Suspect]

REACTIONS (7)
  - ANAEMIA [None]
  - CONVULSION [None]
  - DYSKINESIA [None]
  - EYE ROLLING [None]
  - HYPOTONIA [None]
  - LUNG INFILTRATION [None]
  - UNRESPONSIVE TO STIMULI [None]
